FAERS Safety Report 11688606 (Version 1)
Quarter: 2015Q4

REPORT INFORMATION
  Report Type: Spontaneous
  Country: US (occurrence: CA)
  Receive Date: 20151102
  Receipt Date: 20151102
  Transmission Date: 20160304
  Serious: Yes (Hospitalization)
  Sender: FDA-Public Use
  Company Number: CA-HOSPIRA-3055633

PATIENT
  Age: 67 Year
  Sex: Male
  Weight: 82 kg

DRUGS (17)
  1. ENALAPRIL [Suspect]
     Active Substance: ENALAPRIL
     Indication: PRODUCT USED FOR UNKNOWN INDICATION
  2. CALCIUM FOLINATE [Suspect]
     Active Substance: LEUCOVORIN CALCIUM
     Indication: ADENOCARCINOMA OF COLON
     Dosage: OVER 2 HOURS ON DAY 1
     Route: 042
     Dates: start: 201505, end: 201505
  3. CALCIUM FOLINATE [Suspect]
     Active Substance: LEUCOVORIN CALCIUM
     Indication: COLON CANCER
     Dosage: OVER 2 HOURS ON DAY 1
     Route: 042
     Dates: start: 201505, end: 201505
  4. METOPROLOL [Suspect]
     Active Substance: METOPROLOL
     Indication: PRODUCT USED FOR UNKNOWN INDICATION
  5. FLUOROURACIL. [Suspect]
     Active Substance: FLUOROURACIL
     Indication: COLON CANCER
     Dosage: OVER 46-48 HOURS ON DAY 1
     Route: 042
     Dates: start: 201505, end: 201505
  6. ELOXATIN [Suspect]
     Active Substance: OXALIPLATIN
     Indication: COLON CANCER
     Dosage: OVER 2 HOURS ON DAY 1
     Route: 042
     Dates: start: 201505, end: 201505
  7. CELECOXIB. [Suspect]
     Active Substance: CELECOXIB
     Indication: ADENOCARCINOMA OF COLON
     Dates: start: 20150526, end: 20150615
  8. PLACEBO [Suspect]
     Active Substance: UNSPECIFIED INGREDIENT
     Indication: ADENOCARCINOMA OF COLON
     Dates: start: 20150526, end: 20150615
  9. FUROSEMIDE. [Suspect]
     Active Substance: FUROSEMIDE
     Indication: PRODUCT USED FOR UNKNOWN INDICATION
  10. DIGOXIN. [Suspect]
     Active Substance: DIGOXIN
     Indication: PRODUCT USED FOR UNKNOWN INDICATION
  11. FLUOROURACIL. [Suspect]
     Active Substance: FLUOROURACIL
     Indication: COLON CANCER
     Dosage: ON DAY 1
     Route: 040
     Dates: start: 201505, end: 201505
  12. CELECOXIB. [Suspect]
     Active Substance: CELECOXIB
     Indication: COLON CANCER
     Dates: start: 20150526, end: 20150615
  13. FLUOROURACIL. [Suspect]
     Active Substance: FLUOROURACIL
     Indication: COLON CANCER
     Dosage: ON DAY 1
     Route: 040
     Dates: start: 201505, end: 201505
  14. FLUOROURACIL. [Suspect]
     Active Substance: FLUOROURACIL
     Indication: COLON CANCER
     Dosage: OVER 46-48 HOURS ON DAY 1
     Route: 042
     Dates: start: 201505, end: 201505
  15. WARFARIN [Concomitant]
     Active Substance: WARFARIN
     Indication: PRODUCT USED FOR UNKNOWN INDICATION
  16. PLACEBO [Suspect]
     Active Substance: UNSPECIFIED INGREDIENT
     Indication: COLON CANCER
     Dates: start: 20150526, end: 20150615
  17. ELOXATIN [Suspect]
     Active Substance: OXALIPLATIN
     Indication: ADENOCARCINOMA OF COLON
     Dosage: OVER 2 HOURS ON DAY 1
     Route: 042
     Dates: start: 201505, end: 201505

REACTIONS (1)
  - Acute kidney injury [Recovered/Resolved]

NARRATIVE: CASE EVENT DATE: 20150615
